FAERS Safety Report 5537215-5 (Version None)
Quarter: 2007Q4

REPORT INFORMATION
  Report Type: 
  Country: None (occurrence: None)
  Receive Date: 20071120
  Receipt Date: 20070821
  Transmission Date: 20080405
  Serious: No
  Sender: FDA-Public Use
  Company Number: WAES 0708USA03979

PATIENT
  Age: 75 Year
  Sex: Male

DRUGS (9)
  1. JANUVIA [Suspect]
     Indication: DIABETES MELLITUS
     Dosage: PO
     Route: 048
  2. PLAVIX [Concomitant]
  3. DOXAZOSIN MESYLATE [Concomitant]
  4. ENALAPRIL MALEATE [Concomitant]
  5. HYDROCHLOROTHIAZIDE [Concomitant]
  6. ISOSORBIDE MONONITRATE [Concomitant]
  7. NADOLOL [Concomitant]
  8. POTASSIUM (UNSPECIFIED) [Concomitant]
  9. PRAVASTATIN SODIUM [Concomitant]

REACTIONS (2)
  - MUSCLE SPASMS [None]
  - PAIN IN EXTREMITY [None]
